FAERS Safety Report 16667734 (Version 4)
Quarter: 2020Q1

REPORT INFORMATION
  Report Type: Report from Study
  Country: BR (occurrence: BR)
  Receive Date: 20190805
  Receipt Date: 20200218
  Transmission Date: 20200409
  Serious: Yes (Hospitalization, Disabling, Other)
  Sender: FDA-Public Use
  Company Number: PHHY2019BR181365

PATIENT
  Age: 57 Year
  Sex: Male

DRUGS (4)
  1. COSENTYX [Suspect]
     Active Substance: SECUKINUMAB
     Dosage: UNK
     Route: 065
     Dates: start: 20190412
  2. COSENTYX [Suspect]
     Active Substance: SECUKINUMAB
     Dosage: UNK
     Route: 065
     Dates: start: 202001
  3. COSENTYX [Suspect]
     Active Substance: SECUKINUMAB
     Indication: PSORIATIC ARTHROPATHY
     Dosage: UNK
     Route: 065
     Dates: start: 20180412
  4. COSENTYX [Suspect]
     Active Substance: SECUKINUMAB
     Dosage: UNK
     Route: 065
     Dates: start: 20190818

REACTIONS (16)
  - Muscular weakness [Recovering/Resolving]
  - Peripheral swelling [Recovering/Resolving]
  - Joint swelling [Recovering/Resolving]
  - Eating disorder [Not Recovered/Not Resolved]
  - Depression [Not Recovered/Not Resolved]
  - Arthritis [Recovering/Resolving]
  - Asthenia [Not Recovered/Not Resolved]
  - Anaemia [Recovering/Resolving]
  - Weight decreased [Recovering/Resolving]
  - Cardiac disorder [Recovering/Resolving]
  - Gait disturbance [Recovering/Resolving]
  - Cardiac failure [Unknown]
  - Mobility decreased [Not Recovered/Not Resolved]
  - Arthralgia [Not Recovered/Not Resolved]
  - Malaise [Recovering/Resolving]
  - Fatigue [Unknown]

NARRATIVE: CASE EVENT DATE: 201911
